FAERS Safety Report 4584085-8 (Version None)
Quarter: 2005Q1

REPORT INFORMATION
  Report Type: 
  Country: None (occurrence: None)
  Receive Date: 20050125
  Receipt Date: 20041101
  Transmission Date: 20050727
  Serious: No
  Sender: FDA-Public Use
  Company Number: USA041182746

PATIENT
  Age: 75 Year
  Sex: Female
  Weight: 55 kg

DRUGS (4)
  1. FORTEO [Suspect]
     Indication: OSTEOPOROSIS
     Dosage: 20 UG DAY
     Dates: start: 20041026
  2. SYNTHROID [Concomitant]
  3. CITRACAL (CALCIUM CITRATE) [Concomitant]
  4. CALCIUM CARBONATE W/CHOLECALCIFEROL/SODIUM [Concomitant]

REACTIONS (2)
  - INJECTION SITE ERYTHEMA [None]
  - PALPITATIONS [None]
